FAERS Safety Report 19834012 (Version 1)
Quarter: 2021Q3

REPORT INFORMATION
  Report Type: Spontaneous
  Country: JP (occurrence: JP)
  Receive Date: 20210915
  Receipt Date: 20210915
  Transmission Date: 20211014
  Serious: Yes (Hospitalization)
  Sender: FDA-Public Use
  Company Number: JP-MYLANLABS-2021M1062308

PATIENT
  Age: 75 Year
  Sex: Male
  Weight: 65.3 kg

DRUGS (36)
  1. GRANISETRON [Suspect]
     Active Substance: GRANISETRON
     Indication: PROPHYLAXIS
     Dosage: 1 DOSAGE FORM, QD
     Route: 041
     Dates: start: 20180801, end: 20180803
  2. GLUCOSE [Concomitant]
     Active Substance: DEXTROSE
     Dosage: 1 DOSAGE FORM, QD
     Route: 041
     Dates: start: 20180906, end: 20180907
  3. ISOTONIC SODIUM CHLORIDE SOLUTION [Concomitant]
     Active Substance: SODIUM CHLORIDE
     Dosage: 1 DOSAGE FORM, QD
     Route: 041
     Dates: start: 20210914, end: 20210916
  4. ETOPOSIDE. [Suspect]
     Active Substance: ETOPOSIDE
     Indication: SMALL CELL LUNG CANCER
     Dosage: 175 MILLIGRAM, QD
     Route: 041
     Dates: start: 20180801, end: 20180803
  5. MEDICON                            /00048102/ [Concomitant]
     Active Substance: DEXTROMETHORPHAN HYDROBROMIDE
     Indication: SMALL CELL LUNG CANCER
     Dosage: 5 MILLIGRAM, PRN
     Route: 048
     Dates: start: 20180818
  6. GLUCOSE [Concomitant]
     Active Substance: DEXTROSE
     Dosage: 1 DOSAGE FORM, QD
     Route: 041
     Dates: start: 20180802, end: 20180803
  7. SOLDEM [Concomitant]
     Active Substance: DEXTROSE\POTASSIUM CHLORIDE\SODIUM CHLORIDE\SODIUM LACTATE
     Indication: PRODUCT USED FOR UNKNOWN INDICATION
     Dosage: 1 DOSAGE FORM, QD
     Route: 041
     Dates: start: 20180913, end: 20180914
  8. SOLDEM [Concomitant]
     Active Substance: DEXTROSE\POTASSIUM CHLORIDE\SODIUM CHLORIDE\SODIUM LACTATE
     Dosage: 1 DOSAGE FORM, QD
     Route: 041
     Dates: start: 20180917, end: 20180917
  9. GRANISETRON [Suspect]
     Active Substance: GRANISETRON
     Indication: SMALL CELL LUNG CANCER
     Dosage: 1 DOSAGE FORM, QD
     Route: 041
     Dates: start: 20180905, end: 20180907
  10. EMEND [Concomitant]
     Active Substance: APREPITANT
     Dosage: 80 MILLIGRAM, QD
     Route: 048
     Dates: start: 20180906, end: 20180907
  11. ISOTONIC SODIUM CHLORIDE SOLUTION [Concomitant]
     Active Substance: SODIUM CHLORIDE
     Dosage: 1 DOSAGE FORM, QD
     Route: 041
     Dates: start: 20210910, end: 20210910
  12. ISOTONIC SODIUM CHLORIDE SOLUTION [Concomitant]
     Active Substance: SODIUM CHLORIDE
     Dosage: 1 DOSAGE FORM, QD
     Route: 041
     Dates: start: 20210912, end: 20210912
  13. ISOTONIC SODIUM CHLORIDE SOLUTION [Concomitant]
     Active Substance: SODIUM CHLORIDE
     Dosage: 1 DOSAGE FORM, QD
     Route: 041
     Dates: start: 20210925, end: 20210926
  14. CARBOPLATIN. [Suspect]
     Active Substance: CARBOPLATIN
     Indication: SMALL CELL LUNG CANCER
     Dosage: 60 MILLIGRAM, QD
     Route: 041
     Dates: start: 20180801, end: 20180801
  15. EMEND [Concomitant]
     Active Substance: APREPITANT
     Indication: SMALL CELL LUNG CANCER
     Dosage: 125 MILLIGRAM, QD
     Route: 048
     Dates: start: 20180905, end: 20180905
  16. PRIMPERAN [Concomitant]
     Active Substance: METOCLOPRAMIDE HYDROCHLORIDE
     Dosage: 1 DOSAGE FORM, BID
     Route: 041
     Dates: start: 20180911, end: 20180911
  17. CARBOPLATIN. [Suspect]
     Active Substance: CARBOPLATIN
     Indication: SMALL CELL LUNG CANCER
     Dosage: 450 MILLIGRAM, QD
     Route: 041
     Dates: start: 20180801, end: 20180801
  18. CARBOPLATIN. [Suspect]
     Active Substance: CARBOPLATIN
     Dosage: 450 MILLIGRAM, QD
     Route: 041
     Dates: start: 20180905, end: 20180905
  19. GLUCOSE [Concomitant]
     Active Substance: DEXTROSE
     Indication: PRODUCT USED FOR UNKNOWN INDICATION
     Dosage: 1 DOSAGE FORM, BID
     Route: 041
     Dates: start: 20180801, end: 20180801
  20. ISOTONIC SODIUM CHLORIDE SOLUTION [Concomitant]
     Active Substance: SODIUM CHLORIDE
     Indication: PRODUCT USED FOR UNKNOWN INDICATION
     Dosage: 1 DOSAGE FORM, QD
     Route: 041
     Dates: start: 20210801, end: 20210803
  21. ISOTONIC SODIUM CHLORIDE SOLUTION [Concomitant]
     Active Substance: SODIUM CHLORIDE
     Dosage: 1 DOSAGE FORM, QD
     Route: 041
     Dates: start: 20210905, end: 20210907
  22. FILGRASTIM [Concomitant]
     Active Substance: FILGRASTIM
     Indication: PRODUCT USED FOR UNKNOWN INDICATION
     Dosage: 1 DOSAGE FORM, QD
     Route: 058
     Dates: start: 20180814, end: 20180817
  23. ETOPOSIDE. [Suspect]
     Active Substance: ETOPOSIDE
     Dosage: 135 MILLIGRAM, QD
     Route: 041
     Dates: start: 20180905, end: 20180907
  24. PRIMPERAN [Concomitant]
     Active Substance: METOCLOPRAMIDE HYDROCHLORIDE
     Dosage: 1 DOSAGE FORM, QD
     Route: 041
     Dates: start: 20180912, end: 20180912
  25. PRIMPERAN [Concomitant]
     Active Substance: METOCLOPRAMIDE HYDROCHLORIDE
     Dosage: 1 DOSAGE FORM, QD
     Route: 041
     Dates: start: 20180914, end: 20180916
  26. SOLULACT [Concomitant]
     Active Substance: CALCIUM CHLORIDE\POTASSIUM CHLORIDE\SODIUM CHLORIDE\SODIUM LACTATE
     Indication: PRODUCT USED FOR UNKNOWN INDICATION
     Dosage: 1 DOSAGE FORM, QD
     Route: 041
     Dates: start: 20180919, end: 20180924
  27. VYNDAQEL [Concomitant]
     Active Substance: TAFAMIDIS MEGLUMINE
     Indication: NEUROPATHY PERIPHERAL
     Dosage: 20 MILLIGRAM, QD
     Route: 048
     Dates: start: 20180611, end: 20180926
  28. RESTAMIN KOWA [Concomitant]
     Indication: PRODUCT USED FOR UNKNOWN INDICATION
     Dosage: UNK, PRN
     Route: 003
     Dates: start: 20180705, end: 20180831
  29. DOMPERIDONE [Concomitant]
     Active Substance: DOMPERIDONE
     Indication: SMALL CELL LUNG CANCER
     Dosage: 10 MILLIGRAM, TID
     Route: 048
     Dates: start: 20180810
  30. STRONG RESTAMIN CORTISONE [Concomitant]
     Indication: PRODUCT USED FOR UNKNOWN INDICATION
     Route: 065
  31. GLUCOSE [Concomitant]
     Active Substance: DEXTROSE
     Dosage: 1 DOSAGE FORM, BID
     Route: 041
     Dates: start: 20180905, end: 20180905
  32. CARBOPLATIN. [Suspect]
     Active Substance: CARBOPLATIN
     Dosage: 40 MILLIGRAM, QD
     Route: 041
     Dates: start: 20180905, end: 20180905
  33. PRIMPERAN [Concomitant]
     Active Substance: METOCLOPRAMIDE HYDROCHLORIDE
     Indication: SMALL CELL LUNG CANCER
     Dosage: 5 MILLIGRAM, PRN
     Route: 048
     Dates: start: 20180805, end: 20180805
  34. ISOTONIC SODIUM CHLORIDE SOLUTION [Concomitant]
     Active Substance: SODIUM CHLORIDE
     Dosage: 1 DOSAGE FORM, BID
     Route: 041
     Dates: start: 20210911, end: 20210911
  35. FILGRASTIM [Concomitant]
     Active Substance: FILGRASTIM
     Dosage: 1 DOSAGE FORM, QD
     Route: 058
     Dates: start: 20180920, end: 20180925
  36. PRIMPERAN [Concomitant]
     Active Substance: METOCLOPRAMIDE HYDROCHLORIDE
     Indication: PRODUCT USED FOR UNKNOWN INDICATION
     Dosage: 1 DOSAGE FORM, QD
     Route: 041
     Dates: start: 20180910, end: 20180910

REACTIONS (2)
  - Platelet count decreased [Recovering/Resolving]
  - Neutrophil count decreased [Recovering/Resolving]

NARRATIVE: CASE EVENT DATE: 20180918
